FAERS Safety Report 25346693 (Version 1)
Quarter: 2025Q2

REPORT INFORMATION
  Report Type: Spontaneous
  Country: ES (occurrence: ES)
  Receive Date: 20250522
  Receipt Date: 20250522
  Transmission Date: 20250717
  Serious: Yes (Hospitalization)
  Sender: AUROBINDO
  Company Number: ES-SANDOZ-SDZ2024ES104609

PATIENT
  Age: 30 Year
  Sex: Female

DRUGS (6)
  1. FLUOXETINE [Suspect]
     Active Substance: FLUOXETINE HYDROCHLORIDE
     Indication: Eating disorder
     Route: 065
  2. TOPIRAMATE [Suspect]
     Active Substance: TOPIRAMATE
     Indication: Eating disorder
     Dosage: 50 MILLIGRAM, ONCE A DAY (AT NIGHT)
     Route: 065
  3. MIFEPRISTONE [Concomitant]
     Active Substance: MIFEPRISTONE
     Indication: Abortion induced
     Route: 067
  4. MIFEPRISTONE [Concomitant]
     Active Substance: MIFEPRISTONE
     Route: 067
  5. MIFEPRISTONE [Concomitant]
     Active Substance: MIFEPRISTONE
     Route: 067
  6. MISOPROSTOL [Concomitant]
     Active Substance: MISOPROSTOL
     Indication: Abortion induced
     Route: 065

REACTIONS (2)
  - Abortion induced [Unknown]
  - Maternal exposure during pregnancy [Unknown]
